FAERS Safety Report 9343503 (Version 1)
Quarter: 2013Q2

REPORT INFORMATION
  Report Type: Spontaneous
  Country: US (occurrence: US)
  Receive Date: 20130612
  Receipt Date: 20130612
  Transmission Date: 20140414
  Serious: No
  Sender: FDA-Public Use
  Company Number: US-BIOGENIDEC-2013BI051680

PATIENT
  Age: 46 Year
  Sex: Female

DRUGS (2)
  1. AVONEX [Suspect]
     Indication: MULTIPLE SCLEROSIS
     Route: 030
     Dates: start: 20000929, end: 20070621
  2. AVONEX [Suspect]
     Indication: MULTIPLE SCLEROSIS
     Route: 030
     Dates: start: 20100501

REACTIONS (6)
  - Lower limb fracture [Recovered/Resolved]
  - Visual impairment [Recovered/Resolved]
  - Temperature intolerance [Not Recovered/Not Resolved]
  - Humidity intolerance [Not Recovered/Not Resolved]
  - Multiple sclerosis relapse [Recovered/Resolved]
  - Asthenia [Recovered/Resolved]
